FAERS Safety Report 8377584-4 (Version None)
Quarter: 2012Q2

REPORT INFORMATION
  Report Type: 
  Country: None (occurrence: None)
  Receive Date: 20120522
  Receipt Date: 20120510
  Transmission Date: 20120825
  Serious: Yes (Other)
  Sender: FDA-Public Use
  Company Number: US-JNJFOC-20120511969

PATIENT

DRUGS (30)
  1. BLEOMYCIN [Suspect]
     Dosage: 10U/M2 - CYCLE 3
     Route: 065
  2. DACARBAZINE [Suspect]
     Dosage: CYCLE 2
     Route: 065
  3. DACARBAZINE [Suspect]
     Dosage: CYCLE 6
     Route: 065
  4. INTERFERON ALFA [Suspect]
     Indication: HODGKIN'S DISEASE
     Route: 058
  5. VINBLASTINE SULFATE [Suspect]
     Dosage: CYCLE 1
     Route: 065
  6. DACARBAZINE [Suspect]
     Dosage: CYCLE 3
     Route: 065
  7. INTERFERON ALFA [Suspect]
     Dosage: GIVEN DAY 1-4
     Route: 058
  8. BLEOMYCIN [Suspect]
     Dosage: 10U/M2 - CYCLE 1
     Route: 065
  9. VINBLASTINE SULFATE [Suspect]
     Indication: HODGKIN'S DISEASE
     Dosage: CYCLE 6
     Route: 065
  10. DACARBAZINE [Suspect]
     Indication: HODGKIN'S DISEASE
     Dosage: CYCLE 5
     Route: 065
  11. DOXORUBICIN HYDROCHLORIDE [Suspect]
     Indication: HODGKIN'S DISEASE
     Dosage: 1 CYCLE
     Route: 042
  12. DOXORUBICIN HYDROCHLORIDE [Suspect]
     Dosage: CYCLE 5
     Route: 042
  13. BLEOMYCIN [Suspect]
     Dosage: 10U/M2 - CYCLE 5
     Route: 065
  14. DACARBAZINE [Suspect]
     Dosage: CYCLE 1
     Route: 065
  15. DOXORUBICIN HYDROCHLORIDE [Suspect]
     Dosage: CYCLE 2
     Route: 042
  16. INTERFERON ALFA [Suspect]
     Route: 058
  17. VINBLASTINE SULFATE [Suspect]
     Dosage: CYCLE 3
     Route: 065
  18. DACARBAZINE [Suspect]
     Dosage: CYCLE 4
     Route: 065
  19. DOXORUBICIN HYDROCHLORIDE [Suspect]
     Dosage: CYCLE 4
     Route: 042
  20. INTERFERON ALFA [Suspect]
     Route: 058
  21. INTERFERON ALFA [Suspect]
     Route: 058
  22. VINBLASTINE SULFATE [Suspect]
     Dosage: CYCLE 5
     Route: 065
  23. VINBLASTINE SULFATE [Suspect]
     Dosage: CYCLE 2
     Route: 065
  24. DOXORUBICIN HYDROCHLORIDE [Suspect]
     Dosage: CYCLE 3
     Route: 042
  25. DOXORUBICIN HYDROCHLORIDE [Suspect]
     Dosage: CYCLE 6
     Route: 042
  26. BLEOMYCIN [Suspect]
     Indication: HODGKIN'S DISEASE
     Dosage: 10U/M2 - CYCLE 2
     Route: 065
  27. VINBLASTINE SULFATE [Suspect]
     Dosage: CYCLE 4
     Route: 065
  28. INTERFERON ALFA [Suspect]
     Route: 058
  29. BLEOMYCIN [Suspect]
     Dosage: 10U/M2 - CYCLE 6
     Route: 065
  30. BLEOMYCIN [Suspect]
     Dosage: 10U/M2 - CYCLE 4
     Route: 065

REACTIONS (1)
  - PULMONARY TOXICITY [None]
